FAERS Safety Report 7677751-9 (Version None)
Quarter: 2011Q3

REPORT INFORMATION
  Report Type: 
  Country: None (occurrence: None)
  Receive Date: 20110811
  Receipt Date: 20110805
  Transmission Date: 20111222
  Serious: Yes (Other)
  Sender: FDA-Public Use
  Company Number: US-PFIZER INC-2011180055

PATIENT
  Sex: Female

DRUGS (7)
  1. ALPRAZOLAM [Suspect]
     Indication: ANXIETY
     Dosage: 0.25 MG, 3X/DAY
     Route: 048
     Dates: start: 20090101, end: 20110101
  2. SPIRIVA [Suspect]
     Indication: CHRONIC OBSTRUCTIVE PULMONARY DISEASE
     Dosage: UNK
  3. METOPROLOL [Concomitant]
     Indication: HEART RATE INCREASED
     Dosage: 50 MG, UNK
  4. DIOVAN HCT [Concomitant]
     Dosage: 320/25 MG, UNK
  5. CHANTIX [Suspect]
     Indication: SMOKING CESSATION THERAPY
     Dosage: 0.5 MG, DAILY
     Dates: start: 20110101
  6. ALPRAZOLAM [Suspect]
     Dosage: 0.5 MG, 3X/DAY
     Route: 048
     Dates: start: 20110101
  7. SIMVASTATIN [Concomitant]
     Indication: BLOOD CHOLESTEROL ABNORMAL
     Dosage: UNK

REACTIONS (1)
  - WEIGHT DECREASED [None]
